FAERS Safety Report 4642658-8 (Version None)
Quarter: 2005Q2

REPORT INFORMATION
  Report Type: 
  Country: None (occurrence: None)
  Receive Date: 20050420
  Receipt Date: 20050406
  Transmission Date: 20051028
  Serious: Yes (Disabling)
  Sender: FDA-Public Use
  Company Number: MK200412-0349-1

PATIENT
  Age: 67 Year
  Sex: Male
  Weight: 71 kg

DRUGS (1)
  1. HEXABRIX [Suspect]
     Indication: ANGIOGRAM
     Dosage: SINGLE USE, IA
     Route: 013
     Dates: start: 20041118, end: 20041118

REACTIONS (1)
  - HEMIANOPIA HOMONYMOUS [None]
